FAERS Safety Report 25786299 (Version 1)
Quarter: 2025Q3

REPORT INFORMATION
  Report Type: Spontaneous
  Country: US (occurrence: US)
  Receive Date: 20250910
  Receipt Date: 20250910
  Transmission Date: 20251021
  Serious: No
  Sender: SANOFI AVENTIS
  Company Number: US-SA-2025SA268620

PATIENT
  Sex: Male
  Weight: 73.93 kg

DRUGS (1)
  1. DUPIXENT [Suspect]
     Active Substance: DUPILUMAB
     Indication: Illness
     Dosage: 300 MG, QW
     Route: 058

REACTIONS (3)
  - Injection site rash [Recovered/Resolved]
  - Injection site bruising [Unknown]
  - Injection site swelling [Recovered/Resolved]
